FAERS Safety Report 25899155 (Version 1)
Quarter: 2025Q4

REPORT INFORMATION
  Report Type: Spontaneous
  Country: RU (occurrence: RU)
  Receive Date: 20251009
  Receipt Date: 20251009
  Transmission Date: 20260118
  Serious: Yes (Other)
  Sender: VIIV
  Company Number: RU-VIIV HEALTHCARE- RU2025EME127653

PATIENT
  Age: 66 Year

DRUGS (2)
  1. DOLUTEGRAVIR [Suspect]
     Active Substance: DOLUTEGRAVIR
     Indication: Product used for unknown indication
     Dosage: 50 MG DAILY
  2. ATAZANAVIR [Concomitant]
     Active Substance: ATAZANAVIR
     Indication: Product used for unknown indication
     Dosage: UNK

REACTIONS (2)
  - Diabetes mellitus [Unknown]
  - Hyperlipidaemia [Unknown]
